FAERS Safety Report 7375713-2 (Version None)
Quarter: 2011Q1

REPORT INFORMATION
  Report Type: 
  Country: None (occurrence: None)
  Receive Date: 20110325
  Receipt Date: 20110315
  Transmission Date: 20110831
  Serious: Yes (Hospitalization)
  Sender: FDA-Public Use
  Company Number: US-ROCHE-765693

PATIENT
  Sex: Female
  Weight: 98.6 kg

DRUGS (9)
  1. CYCLOPHOSPHAMIDE [Suspect]
     Indication: BREAST CANCER
     Dosage: LAST DOSE ADMINISTERED: 25 FEB 2011. DOSE REDUCED.
     Route: 065
     Dates: start: 20110204
  2. HYDROCHLOROTHIAZIDE [Concomitant]
  3. ATENOLOL [Concomitant]
  4. CALCIUM [Concomitant]
  5. DOCETAXEL [Suspect]
     Indication: BREAST CANCER
     Dosage: LAST ADMINISTERED DOSE: 25 FEB 2011
     Route: 065
     Dates: start: 20110204
  6. PAROXETINE HCL [Concomitant]
  7. BEVACIZUMAB [Suspect]
     Indication: BREAST CANCER
     Dosage: DOSE CHANGED. LAST DATE PRIOR TO SAE: 4 FEB 2011
     Route: 065
     Dates: start: 20110204, end: 20110225
  8. ALEVE [Concomitant]
  9. CLOBETASOL PROPIONATE [Concomitant]

REACTIONS (5)
  - NAUSEA [None]
  - WEIGHT DECREASED [None]
  - FAILURE TO THRIVE [None]
  - FATIGUE [None]
  - DEHYDRATION [None]
